FAERS Safety Report 24546030 (Version 1)
Quarter: 2024Q4

REPORT INFORMATION
  Report Type: Spontaneous
  Country: US (occurrence: None)
  Receive Date: 20241024
  Receipt Date: 20241024
  Transmission Date: 20250115
  Serious: Yes (Other)
  Sender: Public
  Company Number: None

PATIENT
  Sex: Male

DRUGS (1)
  1. SKYRIZI [Suspect]
     Active Substance: RISANKIZUMAB-RZAA
     Indication: Psoriasis
     Dosage: FREQ: RX 1 - INJECT 1 PEN (150 MG) UNDER THE SKIN (SUBCUTANEOUSLY) AT WEEK 0, WEEK 4, THEN EVERY 12
     Route: 058
     Dates: start: 20240822

REACTIONS (4)
  - Infection [None]
  - Acne [None]
  - Therapy non-responder [None]
  - Immunodeficiency [None]
